FAERS Safety Report 19931495 (Version 1)
Quarter: 2021Q4

REPORT INFORMATION
  Report Type: Spontaneous
  Country: DE (occurrence: JP)
  Receive Date: 20211007
  Receipt Date: 20211007
  Transmission Date: 20220303
  Serious: Yes (Other)
  Sender: FDA-Public Use
  Company Number: JP-MERCK HEALTHCARE KGAA-9269459

PATIENT
  Age: 57 Year
  Sex: Male

DRUGS (2)
  1. ERBITUX [Suspect]
     Active Substance: CETUXIMAB
     Indication: Gingival cancer
     Dosage: UNK, UNKNOWN
     Route: 041
  2. PACLITAXEL [Concomitant]
     Active Substance: PACLITAXEL
     Indication: Gingival cancer
     Dosage: UNK, UNKNOWN
     Route: 065

REACTIONS (3)
  - Lung cyst [Unknown]
  - Pneumothorax [Recovered/Resolved]
  - Off label use [Unknown]
